FAERS Safety Report 4499800-1 (Version None)
Quarter: 2004Q4

REPORT INFORMATION
  Report Type: 
  Country: None (occurrence: None)
  Receive Date: 20041110
  Receipt Date: 20041110
  Transmission Date: 20050328
  Serious: Yes (Hospitalization)
  Sender: FDA-Public Use
  Company Number: None

PATIENT
  Age: 54 Year
  Sex: Male
  Weight: 65.1 kg

DRUGS (4)
  1. WARFARIN SODIUM [Suspect]
     Dosage: 5MG, 5MG DAILY, ORAL
     Route: 048
  2. DOCUSATE [Concomitant]
  3. OXYCODONE 5MG/ACETAMINOPHEN [Concomitant]
  4. LAMOTRIGINE [Concomitant]

REACTIONS (1)
  - LABORATORY TEST ABNORMAL [None]
